FAERS Safety Report 6445630 (Version 3)
Quarter: 2025Q2

REPORT INFORMATION
  Report Type: Spontaneous
  Country: ES (occurrence: ES)
  Receive Date: 20071019
  Receipt Date: 20250630
  Transmission Date: 20250717
  Serious: Yes (Hospitalization, Other)
  Sender: PFIZER
  Company Number: ES-PFIZER INC-2007084649

PATIENT
  Age: 78 Year
  Sex: Male

DRUGS (1)
  1. SOGILEN [Suspect]
     Active Substance: CABERGOLINE
     Indication: Parkinsonism
     Dosage: 1 MG DAILY EVERY DAY TDD:1 MG
     Route: 048

REACTIONS (5)
  - Pneumonitis [Recovering/Resolving]
  - Lung disorder [Recovering/Resolving]
  - Serositis [Recovering/Resolving]
  - Pleural effusion [Recovering/Resolving]
  - Pericardial fibrosis [Recovering/Resolving]
